FAERS Safety Report 9959580 (Version 2)
Quarter: 2014Q4

REPORT INFORMATION
  Report Type: Spontaneous
  Country: US (occurrence: None)
  Receive Date: 20140228
  Receipt Date: 20141028
  Transmission Date: 20150529
  Serious: Yes (Hospitalization, Other)
  Sender: FDA-Public Use
  Company Number: 2014-US-001998

PATIENT
  Age: 60 Year
  Sex: Female

DRUGS (8)
  1. XYREM [Suspect]
     Active Substance: SODIUM OXYBATE
     Indication: NARCOLEPSY
     Route: 048
     Dates: start: 200710
  2. HYDROCHLOROTHIAZIDE (HYDROCHLOROTHIAZIDE) [Concomitant]
     Active Substance: HYDROCHLOROTHIAZIDE
  3. NORCO (HYDROCODONE BITARTRATE, PARACETAMOL) [Concomitant]
  4. PAMATE (TRANYLCYPROMINE SULFATE) [Concomitant]
  5. ASPIRIN (ACETYLSALICYLIC ACID) [Concomitant]
     Active Substance: ASPIRIN
  6. METOPROLOL (METOPROLOL TARTRATE) [Concomitant]
     Active Substance: METOPROLOL TARTRATE
  7. PROVIGIL [Concomitant]
     Active Substance: MODAFINIL
  8. LYRICA [Concomitant]
     Active Substance: PREGABALIN

REACTIONS (7)
  - Pelvic pain [None]
  - Procedural pain [None]
  - Volvulus of small bowel [None]
  - Abdominal adhesions [None]
  - Drug ineffective [None]
  - Narcolepsy [None]
  - Muscle spasms [None]

NARRATIVE: CASE EVENT DATE: 201401
